FAERS Safety Report 17163165 (Version 1)
Quarter: 2019Q4

REPORT INFORMATION
  Report Type: Spontaneous
  Country: FR (occurrence: FR)
  Receive Date: 20191217
  Receipt Date: 20191217
  Transmission Date: 20200122
  Serious: Yes (Other)
  Sender: FDA-Public Use
  Company Number: FR-ELI_LILLY_AND_COMPANY-FR201912005415

PATIENT
  Age: 58 Year
  Sex: Female

DRUGS (3)
  1. VERZENIO [Suspect]
     Active Substance: ABEMACICLIB
     Indication: BREAST CANCER METASTATIC
     Dosage: 150 MG, DAILY
     Route: 065
  2. VERZENIO [Suspect]
     Active Substance: ABEMACICLIB
     Dosage: 150 MG, BID
     Route: 065
  3. LOPERAMIDE [Concomitant]
     Active Substance: LOPERAMIDE
     Indication: PRODUCT USED FOR UNKNOWN INDICATION

REACTIONS (3)
  - Diarrhoea [Recovered/Resolved]
  - Rectal haemorrhage [Recovered/Resolved]
  - Abdominal pain upper [Recovered/Resolved]
